FAERS Safety Report 10735449 (Version 3)
Quarter: 2015Q1

REPORT INFORMATION
  Report Type: Spontaneous
  Country: US (occurrence: US)
  Receive Date: 20150126
  Receipt Date: 20150310
  Transmission Date: 20150721
  Serious: Yes (Death, Hospitalization, Other)
  Sender: FDA-Public Use
  Company Number: US-AMGEN-USASP2015006352

PATIENT
  Age: 89 Year
  Sex: Male

DRUGS (1)
  1. SENSIPAR [Suspect]
     Active Substance: CINACALCET HYDROCHLORIDE
     Indication: HYPERPARATHYROIDISM
     Dosage: 30 MG, QD
     Route: 048
     Dates: start: 201307

REACTIONS (5)
  - Cardiac failure congestive [Not Recovered/Not Resolved]
  - Aortic stenosis [Fatal]
  - Hypertension [Fatal]
  - Influenza [Unknown]
  - Atrioventricular block complete [Unknown]
